FAERS Safety Report 8585838-1 (Version None)
Quarter: 2012Q3

REPORT INFORMATION
  Report Type: 
  Country: None (occurrence: None)
  Receive Date: 20120810
  Receipt Date: 20120801
  Transmission Date: 20120928
  Serious: Yes (Hospitalization)
  Sender: FDA-Public Use
  Company Number: JP-BAYER-2012-078759

PATIENT
  Age: 61 Year
  Sex: Male

DRUGS (6)
  1. ALLOPURINOL [Concomitant]
     Dosage: DAILY DOSE 200 MG
     Route: 048
  2. CELECOXIB [Concomitant]
     Dosage: DAILY DOSE 200 MG
     Route: 048
  3. FAMOTIDINE [Concomitant]
     Dosage: DAILY DOSE 20 MG
     Route: 048
  4. FLOMOX [Concomitant]
     Dosage: DAILY DOSE 300 MG
     Route: 048
  5. NEXAVAR [Suspect]
     Indication: RENAL CANCER
     Dosage: DAILY DOSE 800 MG
     Route: 048
     Dates: start: 20120531, end: 20120712
  6. NORVASC [Concomitant]
     Dosage: DAILY DOSE 5 MG
     Route: 048

REACTIONS (1)
  - HEPATIC FUNCTION ABNORMAL [None]
